FAERS Safety Report 14844357 (Version 2)
Quarter: 2018Q2

REPORT INFORMATION
  Report Type: Report from Study
  Country: AR (occurrence: AR)
  Receive Date: 20180503
  Receipt Date: 20180607
  Transmission Date: 20180711
  Serious: Yes (Other)
  Sender: FDA-Public Use
  Company Number: PHHY2017AR150167

PATIENT
  Age: 64 Year
  Sex: Female

DRUGS (4)
  1. ALPRAZOLAM. [Concomitant]
     Active Substance: ALPRAZOLAM
     Indication: SLEEP DISORDER
  2. ZOLEDRONIC ACID [Suspect]
     Active Substance: ZOLEDRONIC ACID
     Indication: PRODUCT USED FOR UNKNOWN INDICATION
     Route: 065
  3. LETROZOLE. [Suspect]
     Active Substance: LETROZOLE
     Indication: PRODUCT USED FOR UNKNOWN INDICATION
     Dosage: 2.5 MG, QD
     Route: 065
  4. AFINITOR [Suspect]
     Active Substance: EVEROLIMUS
     Indication: BREAST CANCER
     Dosage: 10 MG, QD
     Route: 065
     Dates: start: 20170914

REACTIONS (12)
  - Skin disorder [Not Recovered/Not Resolved]
  - Acne [Not Recovered/Not Resolved]
  - Blister [Not Recovered/Not Resolved]
  - Scratch [Not Recovered/Not Resolved]
  - Depressed mood [Unknown]
  - Secretion discharge [Not Recovered/Not Resolved]
  - Dry skin [Not Recovered/Not Resolved]
  - Papule [Unknown]
  - Depressed mood [Recovered/Resolved]
  - Intentional self-injury [Not Recovered/Not Resolved]
  - Fixed eruption [Unknown]
  - Pruritus [Not Recovered/Not Resolved]

NARRATIVE: CASE EVENT DATE: 20171002
